FAERS Safety Report 6065748-4 (Version None)
Quarter: 2009Q1

REPORT INFORMATION
  Report Type: 
  Country: None (occurrence: None)
  Receive Date: 20090202
  Receipt Date: 20090115
  Transmission Date: 20090719
  Serious: Yes (Hospitalization)
  Sender: FDA-Public Use
  Company Number: 8041226

PATIENT
  Age: 15 Year
  Sex: Female

DRUGS (2)
  1. KEPPRA [Suspect]
     Dosage: 350 MG 2/D
  2. KEPPRA [Suspect]
     Dosage: 750 MG 2/D

REACTIONS (3)
  - ILL-DEFINED DISORDER [None]
  - PREGNANCY [None]
  - SUICIDAL IDEATION [None]
